FAERS Safety Report 17152937 (Version 2)
Quarter: 2019Q4

REPORT INFORMATION
  Report Type: Spontaneous
  Country: CN (occurrence: CN)
  Receive Date: 20191213
  Receipt Date: 20191219
  Transmission Date: 20200122
  Serious: Yes (Other)
  Sender: FDA-Public Use
  Company Number: CN-ASTRAZENECA-2019SF79696

PATIENT
  Age: 639 Month
  Sex: Female
  Weight: 67.5 kg

DRUGS (2)
  1. OSIMERTINIB. [Suspect]
     Active Substance: OSIMERTINIB
     Route: 048
  2. IRESSA [Suspect]
     Active Substance: GEFITINIB
     Indication: NON-SMALL CELL LUNG CANCER
     Route: 048
     Dates: start: 2019

REACTIONS (4)
  - Drug resistance [Unknown]
  - Malignant neoplasm progression [Unknown]
  - Metastasis [Unknown]
  - Diarrhoea [Unknown]

NARRATIVE: CASE EVENT DATE: 201907
